FAERS Safety Report 6417958-1 (Version None)
Quarter: 2009Q4

REPORT INFORMATION
  Report Type: 
  Country: None (occurrence: None)
  Receive Date: 20091026
  Receipt Date: 20091013
  Transmission Date: 20100525
  Serious: Yes (Other)
  Sender: FDA-Public Use
  Company Number: ADR38712009

PATIENT
  Age: 75 Year
  Sex: 0

DRUGS (1)
  1. SIMVASTATIN [Suspect]
     Dosage: 40 MG,
     Dates: start: 20050101

REACTIONS (2)
  - DIARRHOEA [None]
  - TRANSIENT ISCHAEMIC ATTACK [None]
